FAERS Safety Report 10514943 (Version 1)
Quarter: 2014Q4

REPORT INFORMATION
  Report Type: Spontaneous
  Country: DE (occurrence: DE)
  Receive Date: 20141013
  Receipt Date: 20141013
  Transmission Date: 20150528
  Serious: Yes (Other)
  Sender: FDA-Public Use
  Company Number: DE-JNJFOC-20141003879

PATIENT
  Age: 69 Year
  Sex: Male

DRUGS (5)
  1. DICLOFENAC [Suspect]
     Active Substance: DICLOFENAC
     Indication: SPINAL COLUMN STENOSIS
     Route: 065
  2. TAMSULOSIN [Concomitant]
     Active Substance: TAMSULOSIN
     Indication: BENIGN PROSTATIC HYPERPLASIA
     Route: 065
  3. METAMIZOLE SODIUM [Suspect]
     Active Substance: METAMIZOLE SODIUM
     Indication: SPINAL COLUMN STENOSIS
     Route: 065
  4. TILIDINE [Suspect]
     Active Substance: TILIDINE
     Indication: SPINAL COLUMN STENOSIS
     Route: 065
  5. IBUPROFEN. [Suspect]
     Active Substance: IBUPROFEN
     Indication: SPINAL COLUMN STENOSIS
     Route: 065

REACTIONS (7)
  - Gastric disorder [Unknown]
  - VIIth nerve paralysis [Unknown]
  - Herpes zoster [Unknown]
  - Renal disorder [Unknown]
  - Fatigue [Unknown]
  - Cerebrovascular accident [Unknown]
  - Constipation [Unknown]
